FAERS Safety Report 23547058 (Version 1)
Quarter: 2024Q1

REPORT INFORMATION
  Report Type: Spontaneous
  Country: US (occurrence: US)
  Receive Date: 20240221
  Receipt Date: 20240221
  Transmission Date: 20240409
  Serious: Yes (Other)
  Sender: FDA-Public Use
  Company Number: US-BRISTOL-MYERS SQUIBB COMPANY-2024-023582

PATIENT
  Age: 72 Year
  Sex: Female

DRUGS (1)
  1. SPRYCEL [Suspect]
     Active Substance: DASATINIB
     Indication: Bone cancer
     Route: 048
     Dates: start: 202310

REACTIONS (5)
  - Stomatitis [Unknown]
  - Oral mucosal erythema [Unknown]
  - Leukoplakia oral [Unknown]
  - Mouth ulceration [Unknown]
  - Off label use [Unknown]
